FAERS Safety Report 7124116-4 (Version None)
Quarter: 2010Q4

REPORT INFORMATION
  Report Type: 
  Country: None (occurrence: None)
  Receive Date: 20101126
  Receipt Date: 20101123
  Transmission Date: 20110411
  Serious: Yes (Hospitalization)
  Sender: FDA-Public Use
  Company Number: PHHO2010RU16918

PATIENT
  Sex: Male
  Weight: 104 kg

DRUGS (8)
  1. ENALAPRIL MALEATE [Suspect]
     Indication: CARDIAC FAILURE CHRONIC
     Dosage: NO TREATMENT RECEIVED
  2. BLINDED LCZ696 LCZ+TAB+CF [Suspect]
     Indication: CARDIAC FAILURE CHRONIC
     Dosage: NO TREATMENT RECEIVED
  3. BLINDED NO TREATMENT RECEIVED NOMED [Suspect]
     Indication: CARDIAC FAILURE CHRONIC
     Dosage: NO TREATMENT RECEIVED
  4. FUROSEMIDE [Concomitant]
     Indication: CARDIAC FAILURE CHRONIC
  5. PLAVIX [Concomitant]
     Indication: CARDIAC FAILURE CHRONIC
  6. CARVEDILOL [Concomitant]
     Indication: CARDIAC FAILURE CHRONIC
  7. VEROSPIRON [Concomitant]
  8. PRESTARIUM [Concomitant]

REACTIONS (4)
  - ANGINA UNSTABLE [None]
  - ARTERIAL STENOSIS [None]
  - CHEST PAIN [None]
  - CONCOMITANT DISEASE PROGRESSION [None]
